FAERS Safety Report 14295700 (Version 1)
Quarter: 2017Q4

REPORT INFORMATION
  Report Type: Spontaneous
  Country: SE (occurrence: SE)
  Receive Date: 20171218
  Receipt Date: 20171218
  Transmission Date: 20180321
  Serious: Yes (Hospitalization, Other)
  Sender: FDA-Public Use
  Company Number: SE-CIPLA LTD.-2017SE23508

PATIENT

DRUGS (3)
  1. SERTRALINE [Suspect]
     Active Substance: SERTRALINE HYDROCHLORIDE
     Dosage: 100 MG, QD, DOSERING 2+0+0
     Route: 065
     Dates: end: 20170926
  2. QUETIAPINE. [Concomitant]
     Active Substance: QUETIAPINE
     Dosage: UNK
     Route: 065
  3. SERTRALINE [Suspect]
     Active Substance: SERTRALINE HYDROCHLORIDE
     Dosage: 50 MG, QD
     Route: 065
     Dates: start: 20170927, end: 201710

REACTIONS (4)
  - Condition aggravated [Not Recovered/Not Resolved]
  - Agitation [Unknown]
  - Psychomotor hyperactivity [Unknown]
  - Anger [Unknown]

NARRATIVE: CASE EVENT DATE: 2017
